FAERS Safety Report 6680308-X (Version None)
Quarter: 2010Q2

REPORT INFORMATION
  Report Type: 
  Country: None (occurrence: None)
  Receive Date: 20100413
  Receipt Date: 20100401
  Transmission Date: 20101027
  Serious: Yes (Hospitalization)
  Sender: FDA-Public Use
  Company Number: HU-ROCHE-682379

PATIENT
  Sex: Female
  Weight: 66 kg

DRUGS (11)
  1. TOCILIZUMAB [Suspect]
     Indication: RHEUMATOID ARTHRITIS
     Route: 065
  2. TOCILIZUMAB [Suspect]
     Dosage: FORM:INFUSION; LAST DOSE PRIOR TO SAE; 11 JAN 2010
     Route: 042
     Dates: start: 20091214, end: 20100124
  3. RISEDRONATE SODIUM [Concomitant]
  4. ARCOXIA [Concomitant]
     Dates: start: 20090519
  5. BUPROPION [Concomitant]
  6. METHOTREXATE [Concomitant]
     Dates: start: 20090301, end: 20100201
  7. HUMA FOLACID [Concomitant]
     Dosage: TDD: 2 X 5 MG
     Dates: start: 20030101, end: 20100201
  8. PANTOPRAZOL [Concomitant]
     Dosage: TDD: 2 X 40 MG
     Dates: start: 20100101
  9. ALPRAZOLAM [Concomitant]
     Dosage: TDD: 3 X 0.25 MG
     Dates: start: 20100201
  10. CONTRAMAL [Concomitant]
     Dosage: TDD: 3 X 50 MG
     Dates: start: 20100127, end: 20100310
  11. ENOXAPARIN SODIUM [Concomitant]
     Dosage: DOSE: 2000 UI
     Dates: start: 20100127, end: 20100201

REACTIONS (2)
  - HYDROTHORAX [None]
  - PNEUMONIA [None]
